FAERS Safety Report 17857379 (Version 2)
Quarter: 2020Q2

REPORT INFORMATION
  Report Type: Spontaneous
  Country: US (occurrence: US)
  Receive Date: 20200603
  Receipt Date: 20200604
  Transmission Date: 20200714
  Serious: No
  Sender: FDA-Public Use
  Company Number: US-AMGEN-USA-20200403886

PATIENT
  Age: 44 Year
  Sex: Male

DRUGS (1)
  1. OTEZLA [Suspect]
     Active Substance: APREMILAST
     Indication: PSORIASIS
     Dosage: 60 MILLIGRAM, BID
     Route: 048
     Dates: start: 20191023

REACTIONS (4)
  - Psoriasis [Not Recovered/Not Resolved]
  - Treatment noncompliance [Unknown]
  - Immune system disorder [Not Recovered/Not Resolved]
  - Drug ineffective [Unknown]
